FAERS Safety Report 8340952-0 (Version None)
Quarter: 2012Q1

REPORT INFORMATION
  Report Type: 
  Country: None (occurrence: None)
  Receive Date: 20120330
  Receipt Date: 20110908
  Transmission Date: 20120608
  Serious: Yes (Other)
  Sender: FDA-Public Use
  Company Number: PHEH2008US08887

PATIENT
  Age: 87 Year
  Sex: Male

DRUGS (2)
  1. UNKNOWN GERD MEDICATION [Concomitant]
  2. EXELON [Suspect]
     Indication: MEMORY IMPAIRMENT
     Dosage: 1 PATCH 4.6;9.5 MG/24 HRS, TRANSDERMAL
     Route: 062

REACTIONS (1)
  - DEPRESSION [None]
